FAERS Safety Report 9791507 (Version 4)
Quarter: 2014Q1

REPORT INFORMATION
  Report Type: Report from Study
  Country: AU (occurrence: AU)
  Receive Date: 20140101
  Receipt Date: 20140331
  Transmission Date: 20141002
  Serious: Yes (Other)
  Sender: FDA-Public Use
  Company Number: PHHY2010AU095246

PATIENT
  Age: 71 Year
  Sex: Female
  Weight: 52.5 kg

DRUGS (20)
  1. ACLASTA [Suspect]
     Dosage: 5 MG, UNK
     Route: 042
     Dates: start: 20090225
  2. ACLASTA [Suspect]
     Dosage: 5 MG, UNK
     Route: 042
     Dates: start: 20100125
  3. ACLASTA [Suspect]
     Dosage: 5 MG, UNK
     Route: 042
     Dates: start: 20110204
  4. ACLASTA [Suspect]
     Dosage: 5 MG, UNK
     Route: 042
     Dates: start: 20120207
  5. ACLASTA [Suspect]
     Dosage: 5 MG, UNK
     Route: 042
     Dates: start: 20130222
  6. ASPIRIN [Concomitant]
     Dosage: 100 MG (1 TABLET), UNK
  7. ATACAND [Concomitant]
     Dosage: 32 MG (1T ABLET), DAILY
  8. IBS SUPPORT [Concomitant]
     Dosage: 1 DF, DAILY
  9. NYOGEL [Concomitant]
     Dosage: 1 DRP (1MG/G), QD (IN THE MORNING BOTH SIDES)
  10. OMEGA 3 FISH OIL                   /06852001/ [Concomitant]
     Dosage: 1000 MG (1 CAPSULE), DAILY
  11. OSTELIN VITAMIN D [Concomitant]
     Dosage: 1000 IU (1 GEL CAPSULE), DAILY WITH MEALS
  12. XALATAN [Concomitant]
     Dosage: 1 DRP, QD (BEFORE BED BOTH SIDES)
  13. ZANTAC [Concomitant]
     Dosage: 300 MG (1TABLET), DAILY
  14. PROLIA [Concomitant]
     Dosage: 1 INJECTION SCI 6/12
     Route: 058
  15. BOOSTRIX IPV [Concomitant]
     Dosage: UNK UKN, UNK
     Dates: start: 20090312
  16. PANVAX H1N1 [Concomitant]
     Dosage: UNK UKN, UNK
     Dates: start: 20091119
  17. FLUVAX [Concomitant]
     Dosage: UNK UKN, UNK
     Dates: start: 2007
  18. FLUVAX [Concomitant]
     Dosage: UNK UKN, UNK
     Dates: start: 20100326
  19. VAXIGRIP [Concomitant]
     Dosage: UNK UKN, UNK
     Dates: start: 20130321
  20. VIVAXIM [Concomitant]
     Dosage: UNK UKN, UNK
     Dates: start: 20130321

REACTIONS (12)
  - Lung consolidation [Unknown]
  - Large intestinal stenosis [Unknown]
  - Renal cyst [Unknown]
  - Bradycardia [Recovered/Resolved]
  - Presyncope [Recovered/Resolved]
  - Diverticulum [Unknown]
  - Skin ulcer [Unknown]
  - Spinal osteoarthritis [Unknown]
  - Spinal disorder [Unknown]
  - Bone disorder [Unknown]
  - Bone density decreased [Unknown]
  - Low density lipoprotein increased [Unknown]
